FAERS Safety Report 5347619-1 (Version None)
Quarter: 2007Q2

REPORT INFORMATION
  Report Type: 
  Country: None (occurrence: None)
  Receive Date: 20070604
  Receipt Date: 20070604
  Transmission Date: 20071010
  Serious: No
  Sender: FDA-Public Use
  Company Number: None

PATIENT
  Age: 45 Year
  Sex: Male
  Weight: 90.7194 kg

DRUGS (2)
  1. ZYVOX [Suspect]
     Indication: FOOT FRACTURE
     Dosage: TWO BID PO
     Route: 048
     Dates: start: 20070509, end: 20070529
  2. ZYVOX [Suspect]
     Indication: WOUND INFECTION STAPHYLOCOCCAL
     Dosage: TWO BID PO
     Route: 048
     Dates: start: 20070509, end: 20070529

REACTIONS (1)
  - NASOPHARYNGITIS [None]
